FAERS Safety Report 4830299-9 (Version None)
Quarter: 2005Q4

REPORT INFORMATION
  Report Type: 
  Country: None (occurrence: None)
  Receive Date: 20051117
  Receipt Date: 20050930
  Transmission Date: 20060501
  Serious: Yes (Hospitalization)
  Sender: FDA-Public Use
  Company Number: JP-BRISTOL-MYERS SQUIBB COMPANY-13127170

PATIENT
  Age: 77 Year
  Sex: Female

DRUGS (2)
  1. TAXOL [Suspect]
     Indication: GASTRIC CANCER
     Route: 041
     Dates: start: 20050810, end: 20050921
  2. FURTULON [Suspect]
     Indication: GASTRIC CANCER
     Route: 048
     Dates: start: 20050812, end: 20050920

REACTIONS (5)
  - ALOPECIA [None]
  - ANAEMIA [None]
  - ARTHRALGIA [None]
  - NEUTROPHIL COUNT DECREASED [None]
  - OESOPHAGEAL STENOSIS [None]
